FAERS Safety Report 14720802 (Version 4)
Quarter: 2018Q3

REPORT INFORMATION
  Report Type: Spontaneous
  Country: US (occurrence: US)
  Receive Date: 20180405
  Receipt Date: 20180912
  Transmission Date: 20181010
  Serious: No
  Sender: FDA-Public Use
  Company Number: US-PFIZER INC-2018139046

PATIENT
  Age: 48 Year
  Sex: Female
  Weight: 108.4 kg

DRUGS (4)
  1. GENOTROPIN MQ [Suspect]
     Active Substance: SOMATROPIN
     Indication: GROWTH HORMONE DEFICIENCY
     Dosage: 0.4 MG, DAILY
     Route: 058
     Dates: start: 20160620, end: 20180601
  2. GENOTROPIN [Concomitant]
     Active Substance: SOMATROPIN
     Indication: GROWTH HORMONE DEFICIENCY
     Dosage: 0.4 MG, 1X/DAY(0.4MG INJECTION IN THE BELLY REGION EVERY NIGHT)
     Route: 058
     Dates: start: 20180613
  3. GENOTROPIN MQ [Suspect]
     Active Substance: SOMATROPIN
     Dosage: 0.4 MG, DAILY (BELLY REGION EVERY NIGHT,7 DAYS A WEEK.)
     Route: 058
     Dates: start: 20180303, end: 20180608
  4. GENOTROPIN MQ [Suspect]
     Active Substance: SOMATROPIN
     Dosage: 0.4 MG, DAILY, (7 DAYS A WEEK.)
     Route: 058

REACTIONS (12)
  - Feeling abnormal [Unknown]
  - Asthenia [Unknown]
  - Anxiety [Unknown]
  - Drug hypersensitivity [Unknown]
  - Fatigue [Unknown]
  - Depression [Unknown]
  - Drug dose omission [Unknown]
  - Weight increased [Unknown]
  - Arthralgia [Unknown]
  - Nausea [Unknown]
  - Dyspnoea [Recovered/Resolved]
  - Insomnia [Unknown]

NARRATIVE: CASE EVENT DATE: 20180601
